FAERS Safety Report 25561789 (Version 3)
Quarter: 2025Q4

REPORT INFORMATION
  Report Type: Spontaneous
  Country: US (occurrence: US)
  Receive Date: 20250716
  Receipt Date: 20251005
  Transmission Date: 20260118
  Serious: No
  Sender: ELI LILLY AND COMPANY
  Company Number: US-ELI_LILLY_AND_COMPANY-US202507008191

PATIENT
  Age: 81 Year
  Sex: Male

DRUGS (6)
  1. KISUNLA [Suspect]
     Active Substance: DONANEMAB-AZBT
     Indication: Product used for unknown indication
     Dosage: UNK UNK, UNKNOWN, 1ST INFUSION
     Route: 065
     Dates: start: 20250409
  2. KISUNLA [Suspect]
     Active Substance: DONANEMAB-AZBT
     Dosage: UNK UNK, UNKNOWN, 2ND INFUSION
     Route: 065
     Dates: start: 20250507
  3. KISUNLA [Suspect]
     Active Substance: DONANEMAB-AZBT
     Dosage: UNK UNK, UNKNOWN, 3RD INFUSION
     Route: 065
  4. KISUNLA [Suspect]
     Active Substance: DONANEMAB-AZBT
     Dosage: UNK UNK, UNKNOWN, 4TH INFUSION
     Route: 065
     Dates: start: 20250702
  5. KISUNLA [Suspect]
     Active Substance: DONANEMAB-AZBT
     Dosage: UNK UNK, UNKNOWN, 5TH INFUSION
     Route: 065
  6. KISUNLA [Suspect]
     Active Substance: DONANEMAB-AZBT
     Dosage: UNK UNK, UNKNOWN, 6TH INFUSION
     Route: 065

REACTIONS (3)
  - Feeling abnormal [Unknown]
  - Headache [Recovered/Resolved]
  - Headache [Unknown]

NARRATIVE: CASE EVENT DATE: 20250410
